FAERS Safety Report 14719285 (Version 1)
Quarter: 2018Q2

REPORT INFORMATION
  Report Type: Report from Study
  Country: US (occurrence: US)
  Receive Date: 20180405
  Receipt Date: 20180405
  Transmission Date: 20180711
  Serious: Yes (Other)
  Sender: FDA-Public Use
  Company Number: US-ROCHE-2038513

PATIENT
  Sex: Female

DRUGS (2)
  1. BEVACIZUMAB. [Suspect]
     Active Substance: BEVACIZUMAB
     Indication: NEOPLASM
     Dosage: 15 MG/KG BY VEIN EVERY 3 WEEKS ON DAY 1 OF EACH 21-DAY CYCLE
     Route: 042
  2. ATEZOLIZUMAB. [Suspect]
     Active Substance: ATEZOLIZUMAB
     Indication: NEOPLASM
     Dosage: 1200 MG BY VEIN ON DAY 1 OF EACH 21-DAY CYCLE
     Route: 042

REACTIONS (2)
  - Hypertension [Unknown]
  - Renal tubular acidosis [Unknown]

NARRATIVE: CASE EVENT DATE: 20171206
